FAERS Safety Report 8960913 (Version 1)
Quarter: 2012Q4

REPORT INFORMATION
  Report Type: Spontaneous
  Country: US (occurrence: None)
  Receive Date: 20121211
  Receipt Date: 20121211
  Transmission Date: 20130627
  Serious: Yes (Hospitalization)
  Sender: FDA-Public Use
  Company Number: None

PATIENT
  Age: 75 Year
  Sex: Female
  Weight: 81.65 kg

DRUGS (1)
  1. LEVOFLOXACIN [Suspect]
     Indication: SINUS INFECTION
     Dates: start: 20120929, end: 20121004

REACTIONS (2)
  - Hypersensitivity [None]
  - Atrial fibrillation [None]
